FAERS Safety Report 6780979-3 (Version None)
Quarter: 2010Q2

REPORT INFORMATION
  Report Type: 
  Country: None (occurrence: None)
  Receive Date: 20100621
  Receipt Date: 20100621
  Transmission Date: 20101027
  Serious: Yes (Hospitalization)
  Sender: FDA-Public Use
  Company Number: None

PATIENT
  Age: 4 Year
  Sex: Male
  Weight: 19.0511 kg

DRUGS (3)
  1. CHILDREN'S MOTRIN [Suspect]
     Indication: IMMUNISATION
     Dosage: 7.5 ML 6-8 HOURS AND PRN PO
     Route: 048
     Dates: start: 20100312, end: 20100415
  2. CHILDREN'S MOTRIN [Suspect]
     Indication: PYREXIA
     Dosage: 7.5 ML 6-8 HOURS AND PRN PO
     Route: 048
     Dates: start: 20100312, end: 20100415
  3. CHILDREN'S BENADRYL ALLERGY [Suspect]
     Indication: HYPERSENSITIVITY
     Dosage: 5 ML SPORATIC PO
     Route: 048
     Dates: start: 20100312, end: 20100415

REACTIONS (5)
  - ABASIA [None]
  - FACE OEDEMA [None]
  - OEDEMA PERIPHERAL [None]
  - PRODUCT QUALITY ISSUE [None]
  - URTICARIA [None]
